FAERS Safety Report 6430156-0 (Version None)
Quarter: 2009Q4

REPORT INFORMATION
  Report Type: 
  Country: None (occurrence: None)
  Receive Date: 20091106
  Receipt Date: 20091027
  Transmission Date: 20100525
  Serious: Yes (Hospitalization)
  Sender: FDA-Public Use
  Company Number: PH-ROCHE-539926

PATIENT
  Sex: Female
  Weight: 64 kg

DRUGS (3)
  1. CAPECITABINE [Suspect]
     Dosage: 3000 MG, UNK
     Route: 065
     Dates: start: 20070314
  2. BLINDED BEVACIZUMAB [Suspect]
     Dosage: 960 MG, Q3W
     Route: 042
     Dates: start: 20070314
  3. BLINDED PLACEBO [Suspect]
     Dosage: 960 MG, Q3W
     Route: 042
     Dates: start: 20070314

REACTIONS (1)
  - RENAL INJURY [None]
